FAERS Safety Report 13704510 (Version 1)
Quarter: 2017Q2

REPORT INFORMATION
  Report Type: Spontaneous
  Country: NL (occurrence: NL)
  Receive Date: 20170630
  Receipt Date: 20170630
  Transmission Date: 20170830
  Serious: Yes (Death, Congenital Anomaly, Other)
  Sender: FDA-Public Use
  Company Number: NL-UCBSA-2017025035

PATIENT
  Age: 0 Day

DRUGS (2)
  1. KEPPRA [Suspect]
     Active Substance: LEVETIRACETAM
     Dosage: 1000 MG, 2X/DAY (BID)
     Route: 064
     Dates: end: 20170617
  2. KEPPRA [Suspect]
     Active Substance: LEVETIRACETAM
     Indication: EPILEPSY
     Dosage: 500 MG, 2X/DAY (BID)
     Route: 064

REACTIONS (3)
  - Volvulus [Fatal]
  - Foetal exposure during pregnancy [Unknown]
  - Intestinal malrotation [Fatal]

NARRATIVE: CASE EVENT DATE: 20170617
